FAERS Safety Report 5424294-9 (Version None)
Quarter: 2007Q3

REPORT INFORMATION
  Report Type: 
  Country: None (occurrence: None)
  Receive Date: 20070823
  Receipt Date: 20070809
  Transmission Date: 20080115
  Serious: No
  Sender: FDA-Public Use
  Company Number: US-BOEHRINGER INGELHEIM PHARMACEUTICALS, INC.-2007-BP-18955BP

PATIENT
  Sex: Male

DRUGS (5)
  1. FLOMAX [Suspect]
     Indication: BENIGN PROSTATIC HYPERPLASIA
     Route: 048
     Dates: start: 20070808
  2. IMDUR [Concomitant]
     Indication: ANGINA PECTORIS
  3. ATENOLOL [Concomitant]
     Indication: HYPERTENSION
  4. PROTONIX [Concomitant]
  5. HYZAAR [Concomitant]
     Indication: BLOOD PRESSURE INCREASED

REACTIONS (1)
  - EPISTAXIS [None]
